FAERS Safety Report 5856159-2 (Version None)
Quarter: 2008Q3

REPORT INFORMATION
  Report Type: 
  Country: None (occurrence: None)
  Receive Date: 20080825
  Receipt Date: 20080814
  Transmission Date: 20090109
  Serious: Yes (Hospitalization, Disabling)
  Sender: FDA-Public Use
  Company Number: US-AMGEN-QUU302286

PATIENT
  Sex: Male
  Weight: 63.6 kg

DRUGS (2)
  1. ENBREL [Suspect]
     Indication: RHEUMATOID ARTHRITIS
     Route: 058
     Dates: start: 20080605, end: 20080705
  2. HUMIRA [Concomitant]
     Dates: start: 20070101

REACTIONS (1)
  - GUILLAIN-BARRE SYNDROME [None]
